FAERS Safety Report 5404329-X (Version None)
Quarter: 2007Q3

REPORT INFORMATION
  Report Type: 
  Country: None (occurrence: None)
  Receive Date: 20070802
  Receipt Date: 20070726
  Transmission Date: 20080115
  Serious: Yes (Death)
  Sender: FDA-Public Use
  Company Number: HQWYE209024JUL07

PATIENT
  Sex: Male
  Weight: 84.44 kg

DRUGS (11)
  1. TORISEL [Suspect]
     Indication: RENAL CELL CARCINOMA STAGE UNSPECIFIED
     Route: 042
     Dates: start: 20070619, end: 20070619
  2. METFORMIN HCL [Concomitant]
     Indication: DIABETES MELLITUS
     Dosage: 500 MG EVERY
     Dates: start: 20070321, end: 20070701
  3. VYTORIN [Concomitant]
     Indication: HYPERLIPIDAEMIA
     Dosage: 10/20 (UNITS NOT PROVIDED)
     Dates: start: 20070321, end: 20070701
  4. AMBIEN CR [Concomitant]
     Indication: INSOMNIA
     Dosage: 12.5 (UNITS NOT PROVIDED)
     Dates: start: 20070619, end: 20070701
  5. OMEGA 3 [Concomitant]
     Indication: MEDICAL DIET
     Dosage: NOT PROVDED
     Dates: start: 20070321, end: 20070701
  6. DECADRON [Concomitant]
     Indication: PREMEDICATION
     Dosage: 10 MG EVERY
     Dates: start: 20070321, end: 20070701
  7. LISINOPRIL [Concomitant]
     Indication: HYPERTENSION
     Dosage: 10 MG EVERY
     Dates: start: 20070619, end: 20070701
  8. ASCORBIC ACID [Concomitant]
     Indication: VITAMIN SUPPLEMENTATION
     Dosage: NOT PROVIDED
     Dates: start: 20070321, end: 20070701
  9. FOLIC ACID [Concomitant]
     Indication: VITAMIN SUPPLEMENTATION
     Dosage: NOT PROVIDED
     Dates: start: 20070321, end: 20070701
  10. AVANDIA [Concomitant]
     Indication: DIABETES MELLITUS
     Dosage: 4 MG EVERY
     Dates: start: 20070321, end: 20070701
  11. TRAZODONE HCL [Concomitant]
     Indication: DEPRESSION
     Dosage: 150 MG EVERY
     Dates: start: 20070619, end: 20070701

REACTIONS (2)
  - CONDITION AGGRAVATED [None]
  - DYSPNOEA [None]
